FAERS Safety Report 16459066 (Version 1)
Quarter: 2019Q2

REPORT INFORMATION
  Report Type: Spontaneous
  Country: HU (occurrence: HU)
  Receive Date: 20190620
  Receipt Date: 20190620
  Transmission Date: 20190711
  Serious: Yes (Hospitalization)
  Sender: FDA-Public Use
  Company Number: HU-TEVA-2019-HU-1064897

PATIENT
  Age: 24 Year
  Sex: Female

DRUGS (5)
  1. METIMAZOLE [Suspect]
     Active Substance: METHIMAZOLE
     Dosage: RECEIVED AS SELF MEDICATION BEFORE ADMISSION
     Route: 065
  2. CIPROFLOXACIN. [Suspect]
     Active Substance: CIPROFLOXACIN
     Dosage: RECEIVED AS SELF MEDICATION BEFORE ADMISSION
     Route: 065
  3. ACETAMINOPHEN. [Suspect]
     Active Substance: ACETAMINOPHEN
     Dosage: RECEIVED AS SELF MEDICATION BEFORE ADMISSION
     Route: 065
  4. AZATHIOPRINE. [Suspect]
     Active Substance: AZATHIOPRINE
     Indication: CROHN^S DISEASE
     Dosage: ADMINISTERED FOR MORE THAN THREE YEARS
     Route: 065
  5. ADALIMUMAB [Suspect]
     Active Substance: ADALIMUMAB
     Indication: CROHN^S DISEASE
     Dosage: ADMINISTERED IN THE YEAR PRIOR TO ADMISSION
     Route: 065

REACTIONS (3)
  - Acute hepatic failure [Recovered/Resolved]
  - Hepatic encephalopathy [Recovered/Resolved]
  - Toxicity to various agents [Recovered/Resolved]
